FAERS Safety Report 20830113 (Version 1)
Quarter: 2022Q2

REPORT INFORMATION
  Report Type: Report from Study
  Country: IN (occurrence: IN)
  Receive Date: 20220514
  Receipt Date: 20220514
  Transmission Date: 20220721
  Serious: Yes (Death)
  Sender: FDA-Public Use
  Company Number: IN-NOVARTISPH-NVSC2022IN111474

PATIENT
  Age: 69 Year
  Sex: Male

DRUGS (1)
  1. ELTROMBOPAG OLAMINE [Suspect]
     Active Substance: ELTROMBOPAG OLAMINE
     Indication: Aplastic anaemia
     Dosage: 150 MG, QD
     Route: 065
     Dates: start: 20220111, end: 20220418

REACTIONS (1)
  - Disease progression [Fatal]
